FAERS Safety Report 23079357 (Version 1)
Quarter: 2023Q4

REPORT INFORMATION
  Report Type: Spontaneous
  Country: CN (occurrence: CN)
  Receive Date: 20231018
  Receipt Date: 20231018
  Transmission Date: 20240109
  Serious: Yes (Hospitalization, Other)
  Sender: FDA-Public Use
  Company Number: CN-PFIZER INC-PV202300170608

PATIENT
  Age: 47 Year
  Sex: Female
  Weight: 47 kg

DRUGS (4)
  1. PACLITAXEL [Suspect]
     Active Substance: PACLITAXEL
     Indication: Ovarian cancer
     Dosage: 255 MG (DISSOLVED IN 500 ML GS), 1X/DAY
     Route: 041
     Dates: start: 20230831, end: 20230831
  2. CARBOPLATIN [Suspect]
     Active Substance: CARBOPLATIN
     Indication: Ovarian cancer
     Dosage: 592 MG (DISSOLVED IN 500 ML GS), 1X/DAY
     Route: 041
     Dates: start: 20230831, end: 20230831
  3. DEXTROSE [Concomitant]
     Active Substance: DEXTROSE\DEXTROSE MONOHYDRATE
     Indication: Vehicle solution use
     Dosage: 500 ML, 1X/DAY (FOR PACLITAXEL)
     Route: 041
     Dates: start: 20230831, end: 20230831
  4. DEXTROSE [Concomitant]
     Active Substance: DEXTROSE\DEXTROSE MONOHYDRATE
     Dosage: 500 ML, 1X/DAY (FOR CARBOPLATIN)
     Route: 041
     Dates: start: 20230831, end: 20230831

REACTIONS (3)
  - Hepatic function abnormal [Recovering/Resolving]
  - Haemoglobin decreased [Recovering/Resolving]
  - Myelosuppression [Recovering/Resolving]

NARRATIVE: CASE EVENT DATE: 20230920
